FAERS Safety Report 24159503 (Version 3)
Quarter: 2024Q3

REPORT INFORMATION
  Report Type: Report from Study
  Country: CA (occurrence: CA)
  Receive Date: 20240731
  Receipt Date: 20240821
  Transmission Date: 20241017
  Serious: Yes (Death, Hospitalization, Other)
  Sender: FERRING
  Company Number: CA-FERRINGPH-2024FE03616

PATIENT

DRUGS (26)
  1. DEGARELIX [Suspect]
     Active Substance: DEGARELIX
     Indication: Hormone-dependent prostate cancer
     Dosage: 80 MG, MONTHLY
     Route: 065
     Dates: start: 20220322, end: 20240628
  2. DEGARELIX [Suspect]
     Active Substance: DEGARELIX
     Dosage: 240 MG, ONCE/SINGLE
     Route: 065
     Dates: start: 20210301, end: 20210301
  3. MESALAMINE [Suspect]
     Active Substance: MESALAMINE
     Indication: Product used for unknown indication
     Dosage: 1600 MG, 2 TIMES DAILY
     Route: 048
  4. ACETAMINOPHEN [Concomitant]
     Active Substance: ACETAMINOPHEN
     Indication: Product used for unknown indication
     Dosage: 975 MG, 2 TIMES DAILY
     Route: 048
  5. ENOXAPARIN [Concomitant]
     Active Substance: ENOXAPARIN
     Indication: Product used for unknown indication
     Dosage: 40 MG, DAILY
     Route: 058
  6. RISEDRONATE SODIUM [Concomitant]
     Active Substance: RISEDRONATE SODIUM
     Indication: Product used for unknown indication
     Dosage: 35 MG, WEEKLY
     Route: 048
  7. DEXAMETHASONE [Concomitant]
     Active Substance: DEXAMETHASONE
     Indication: Product used for unknown indication
     Dosage: 4 MG, DAILY
     Route: 048
  8. DEXAMETHASONE [Concomitant]
     Active Substance: DEXAMETHASONE
     Dosage: 0.5 MG, DAILY
     Route: 048
  9. PANTOPRAZOLE [Concomitant]
     Active Substance: PANTOPRAZOLE
     Indication: Product used for unknown indication
     Dosage: 40 MG, DAILY
     Route: 048
  10. ROSUVASTATIN [Concomitant]
     Active Substance: ROSUVASTATIN\ROSUVASTATIN CALCIUM
     Indication: Product used for unknown indication
     Dosage: 20 MG, DAILY
     Route: 048
  11. ABIRATERONE [Concomitant]
     Active Substance: ABIRATERONE
     Indication: Product used for unknown indication
     Dosage: 1000 MG, DAILY
     Route: 048
  12. CEFTRIAXONE [Concomitant]
     Active Substance: CEFTRIAXONE\CEFTRIAXONE SODIUM
     Indication: Product used for unknown indication
     Dosage: 1 G, DAILY
     Route: 042
  13. ASACOL [Concomitant]
     Active Substance: MESALAMINE
     Indication: Product used for unknown indication
     Dosage: 1600 MG, 2 TIMES DAILY
     Route: 048
  14. FONDAPARINUX [Concomitant]
     Active Substance: FONDAPARINUX
     Indication: Product used for unknown indication
     Dosage: 25 MG, DAILY
     Route: 058
  15. HALOPERIDOL [Concomitant]
     Active Substance: HALOPERIDOL
     Indication: Product used for unknown indication
     Dosage: 20 MG, PRN
     Route: 058
  16. HYDROMORPHONE [Concomitant]
     Active Substance: HYDROMORPHONE
     Indication: Product used for unknown indication
     Dosage: 6 MG, PRN
     Route: 065
  17. HYDROMORPHONE [Concomitant]
     Active Substance: HYDROMORPHONE
     Dosage: 2-4MG EVERY 4HRS PRN
     Route: 065
  18. HYDROMORPHONE [Concomitant]
     Active Substance: HYDROMORPHONE
     Dosage: 2.5-5MG EVERY 2 HRS PRN
     Route: 065
  19. LORAZEPAM [Concomitant]
     Active Substance: LORAZEPAM
     Indication: Product used for unknown indication
     Dosage: 1 MG, TID PRN
  20. METOPROLOL [Concomitant]
     Active Substance: METOPROLOL
     Indication: Product used for unknown indication
     Dosage: 25 MG
     Route: 048
  21. MIDAZOLAM [Concomitant]
     Active Substance: MIDAZOLAM
     Indication: Product used for unknown indication
     Dosage: 2.5-5MG Q H PM
     Route: 058
  22. PEG [PREGABALIN] [Concomitant]
     Indication: Product used for unknown indication
     Dosage: 17 G, DAILY
     Route: 048
  23. PEG [PREGABALIN] [Concomitant]
     Dosage: 25 MG, 2 TIMES DAILY
     Route: 048
  24. POTASSIUM [Concomitant]
     Active Substance: POTASSIUM
     Indication: Product used for unknown indication
     Dosage: 32 MG, DAILY
     Route: 048
  25. SENOKOT [Concomitant]
     Active Substance: SENNOSIDES
     Indication: Product used for unknown indication
     Dosage: 1-2 TABS BID PRN
     Route: 048
  26. FUROSEMIDE [Concomitant]
     Active Substance: FUROSEMIDE
     Indication: Product used for unknown indication
     Dosage: 40 MG, DAILY
     Route: 048

REACTIONS (12)
  - Metastases to central nervous system [Fatal]
  - Vasogenic cerebral oedema [Fatal]
  - Metastases to bone [Fatal]
  - General physical health deterioration [Unknown]
  - Confusional state [Unknown]
  - Syncope [Unknown]
  - Fall [Unknown]
  - Upper limb fracture [Unknown]
  - Flank pain [Unknown]
  - Back pain [Unknown]
  - Lymphadenopathy [Unknown]
  - Bone pain [Unknown]

NARRATIVE: CASE EVENT DATE: 20240101
